FAERS Safety Report 9772630 (Version 1)
Quarter: 2013Q4

REPORT INFORMATION
  Report Type: Spontaneous
  Country: US (occurrence: US)
  Receive Date: 20131219
  Receipt Date: 20131219
  Transmission Date: 20140711
  Serious: Yes (Other)
  Sender: FDA-Public Use
  Company Number: US-009507513-1312USA007882

PATIENT
  Age: 17 Year
  Sex: Female
  Weight: 47.62 kg

DRUGS (1)
  1. IMPLANON [Suspect]
     Indication: CONTRACEPTION
     Dosage: IMPLANT IN HER LEFT ARM
     Route: 059
     Dates: start: 20121221, end: 20131216

REACTIONS (6)
  - Surgery [Recovered/Resolved]
  - Stress [Unknown]
  - Haemorrhage [Unknown]
  - Mass [Unknown]
  - Device breakage [Unknown]
  - Complication of device removal [Recovered/Resolved]
